FAERS Safety Report 21469880 (Version 1)
Quarter: 2022Q4

REPORT INFORMATION
  Report Type: Spontaneous
  Country: CN (occurrence: None)
  Receive Date: 20221018
  Receipt Date: 20221018
  Transmission Date: 20230113
  Serious: Yes (Other)
  Sender: FDA-Public Use
  Company Number: CN-ROCHE-3199909

PATIENT
  Age: 65 Year
  Sex: Female

DRUGS (7)
  1. HERCEPTIN [Suspect]
     Active Substance: TRASTUZUMAB
     Indication: Invasive ductal breast carcinoma
     Dosage: THP, 3-WEEK REGIMEN, MAINTENANCE THERAPY FROM NOVEMBER 2020 TO APRIL 2021
     Route: 065
  2. PERJETA [Suspect]
     Active Substance: PERTUZUMAB
     Indication: Invasive ductal breast carcinoma
     Dosage: THP, 3-WEEK REGIMEN, MAINTENANCE THERAPY FROM NOVEMBER 2020 TO APRIL 2021
     Route: 065
  3. KADCYLA [Suspect]
     Active Substance: ADO-TRASTUZUMAB EMTANSINE
     Indication: Invasive ductal breast carcinoma
     Dosage: THP, 3-WEEK REGIMEN
     Route: 065
  4. PACLITAXEL [Concomitant]
     Active Substance: PACLITAXEL
     Indication: Invasive ductal breast carcinoma
     Dosage: THP, 3-WEEK REGIMEN
  5. ZOLEDRONIC ACID [Concomitant]
     Active Substance: ZOLEDRONIC ACID
     Indication: Invasive ductal breast carcinoma
  6. CAPECITABINE [Concomitant]
     Active Substance: CAPECITABINE
     Indication: Invasive ductal breast carcinoma
     Dosage: MAINTENANCE THERAPY FROM NOVEMBER 2020 TO APRIL 2021
     Route: 048
  7. PYROTINIB [Concomitant]
     Active Substance: PYROTINIB
     Indication: Invasive ductal breast carcinoma
     Dosage: MAINTENANCE THERAPY FROM NOVEMBER 2020 TO APRIL 2021

REACTIONS (3)
  - Platelet count decreased [Unknown]
  - Disease progression [Unknown]
  - Drug ineffective [Unknown]

NARRATIVE: CASE EVENT DATE: 20210428
